FAERS Safety Report 25182509 (Version 11)
Quarter: 2025Q3

REPORT INFORMATION
  Report Type: Spontaneous
  Country: JP (occurrence: JP)
  Receive Date: 20250410
  Receipt Date: 20250919
  Transmission Date: 20251021
  Serious: Yes (Hospitalization, Other)
  Sender: BOEHRINGER INGELHEIM
  Company Number: JP-NBI-2025-BI-014855

PATIENT
  Age: 74 Year
  Sex: Female

DRUGS (3)
  1. OFEV [Suspect]
     Active Substance: NINTEDANIB
     Indication: Idiopathic pulmonary fibrosis
     Dates: start: 20250219, end: 20250327
  2. OFEV [Suspect]
     Active Substance: NINTEDANIB
     Dates: start: 20250328, end: 20250612
  3. OFEV [Suspect]
     Active Substance: NINTEDANIB

REACTIONS (38)
  - Cataract [Recovered/Resolved]
  - Idiopathic pulmonary fibrosis [Not Recovered/Not Resolved]
  - Hypertension [Recovering/Resolving]
  - Rhinorrhoea [Not Recovered/Not Resolved]
  - Diarrhoea [Recovered/Resolved]
  - Hepatic function abnormal [Recovered/Resolved]
  - Abdominal discomfort [Not Recovered/Not Resolved]
  - Dyspnoea [Not Recovered/Not Resolved]
  - Fatigue [Unknown]
  - Nausea [Not Recovered/Not Resolved]
  - Weight decreased [Recovered/Resolved]
  - Blood test abnormal [Recovered/Resolved]
  - Nausea [Not Recovered/Not Resolved]
  - Dizziness [Not Recovered/Not Resolved]
  - Diarrhoea [Not Recovered/Not Resolved]
  - Vertigo [Not Recovered/Not Resolved]
  - Dry mouth [Not Recovered/Not Resolved]
  - Weight decreased [Recovering/Resolving]
  - Rash [Not Recovered/Not Resolved]
  - Ocular hyperaemia [Recovering/Resolving]
  - Visual impairment [Not Recovered/Not Resolved]
  - Diarrhoea [Recovered/Resolved]
  - Pruritus [Recovered/Resolved]
  - Muscle spasms [Not Recovered/Not Resolved]
  - Cough [Not Recovered/Not Resolved]
  - Oropharyngeal pain [Not Recovered/Not Resolved]
  - Abdominal pain [Not Recovered/Not Resolved]
  - Capillary disorder [Not Recovered/Not Resolved]
  - Eructation [Not Recovered/Not Resolved]
  - Malaise [Recovering/Resolving]
  - Dyspnoea [Not Recovered/Not Resolved]
  - Oxygen saturation decreased [Unknown]
  - Oropharyngeal discomfort [Not Recovered/Not Resolved]
  - Hepatic steatosis [Not Recovered/Not Resolved]
  - Decreased appetite [Not Recovered/Not Resolved]
  - Fall [Unknown]
  - Oxygen saturation decreased [Not Recovered/Not Resolved]
  - Gait disturbance [Unknown]

NARRATIVE: CASE EVENT DATE: 20250301
